FAERS Safety Report 18354588 (Version 1)
Quarter: 2020Q4

REPORT INFORMATION
  Report Type: Spontaneous
  Country: FR (occurrence: FR)
  Receive Date: 20201007
  Receipt Date: 20201007
  Transmission Date: 20210114
  Serious: Yes (Life-Threatening)
  Sender: FDA-Public Use
  Company Number: FR-TEVA-2020-FR-1835630

PATIENT
  Age: 63 Year
  Sex: Male

DRUGS (4)
  1. SOLU-MEDROL [Concomitant]
     Active Substance: METHYLPREDNISOLONE SODIUM SUCCINATE
     Indication: NAUSEA
     Dosage: UNIT DOSE : 60 MG
     Route: 042
     Dates: start: 20200831, end: 20200904
  2. CISPLATINE [Suspect]
     Active Substance: CISPLATIN
     Indication: OESOPHAGEAL ADENOCARCINOMA
     Dosage: UNIT DOSE : 27 MG
     Route: 042
     Dates: start: 20200831, end: 20200902
  3. EMEND [Suspect]
     Active Substance: APREPITANT
     Indication: NAUSEA
     Dosage: UNIT DOSE : 80 MG
     Route: 048
     Dates: start: 20200831, end: 20200902
  4. FLUOROURACILE [Concomitant]
     Active Substance: FLUOROURACIL
     Indication: OESOPHAGEAL ADENOCARCINOMA
     Dosage: UNIT DOSE : 1.45 GRAM
     Route: 042
     Dates: start: 20200831, end: 20200904

REACTIONS (1)
  - Sinus bradycardia [Recovered/Resolved]

NARRATIVE: CASE EVENT DATE: 20200902
